FAERS Safety Report 14333045 (Version 1)
Quarter: 2017Q4

REPORT INFORMATION
  Report Type: Spontaneous
  Country: DE (occurrence: DE)
  Receive Date: 20171228
  Receipt Date: 20171228
  Transmission Date: 20180321
  Serious: Yes (Other)
  Sender: FDA-Public Use
  Company Number: DE-BAYER-2017-245661

PATIENT
  Age: 21 Year
  Sex: Female

DRUGS (1)
  1. JAYDESS [Suspect]
     Active Substance: LEVONORGESTREL
     Indication: CONTRACEPTION
     Dosage: 14 MCG/24HR, CONT
     Route: 015
     Dates: start: 201510, end: 201712

REACTIONS (10)
  - Chest pain [Not Recovered/Not Resolved]
  - Feeling of despair [Not Recovered/Not Resolved]
  - Lethargy [Not Recovered/Not Resolved]
  - Breast tenderness [Not Recovered/Not Resolved]
  - Inadequate lubrication [Not Recovered/Not Resolved]
  - Urinary tract infection [Unknown]
  - Abdominal pain lower [Not Recovered/Not Resolved]
  - Libido decreased [Not Recovered/Not Resolved]
  - Skin ulcer [Unknown]
  - Dysmenorrhoea [Not Recovered/Not Resolved]

NARRATIVE: CASE EVENT DATE: 201510
